FAERS Safety Report 12833350 (Version 2)
Quarter: 2016Q4

REPORT INFORMATION
  Report Type: Report from Study
  Country: None (occurrence: US)
  Receive Date: 20161010
  Receipt Date: 20161027
  Transmission Date: 20170207
  Serious: Yes (Hospitalization)
  Sender: FDA-Public Use
  Company Number: US-ABBVIE-16K-163-1747336-00

PATIENT
  Age: 51 Year
  Sex: Female

DRUGS (1)
  1. HUMIRA [Suspect]
     Active Substance: ADALIMUMAB
     Indication: RHEUMATOID ARTHRITIS
     Route: 058

REACTIONS (6)
  - Spondylitis [Unknown]
  - Post procedural discharge [Unknown]
  - Intervertebral disc protrusion [Unknown]
  - Wound infection pseudomonas [Not Recovered/Not Resolved]
  - Sciatica [Unknown]
  - Pruritus [Unknown]

NARRATIVE: CASE EVENT DATE: 201603
